FAERS Safety Report 15144931 (Version 2)
Quarter: 2018Q4

REPORT INFORMATION
  Report Type: Spontaneous
  Country: US (occurrence: US)
  Receive Date: 20180713
  Receipt Date: 20181008
  Transmission Date: 20190204
  Serious: No
  Sender: FDA-Public Use
  Company Number: US-CHILTERN-US-2018-000036

PATIENT
  Age: 63 Year
  Sex: Female

DRUGS (5)
  1. ZIOPTAN [Concomitant]
     Active Substance: TAFLUPROST
     Indication: GLAUCOMA
     Dosage: 1 GTT, QD
     Route: 047
     Dates: start: 2014
  2. RHOPRESSA [Suspect]
     Active Substance: NETARSUDIL MESYLATE
     Indication: GLAUCOMA
     Dosage: 1 UNK, QD
     Route: 047
     Dates: start: 201806
  3. COSOPT FREE [Concomitant]
     Indication: GLAUCOMA
     Dosage: 1 GTT BID
     Route: 047
     Dates: start: 2014
  4. ALPHAGAN P [Concomitant]
     Active Substance: BRIMONIDINE TARTRATE
     Indication: GLAUCOMA
     Dosage: 1 GTT TID
     Route: 047
     Dates: start: 2014
  5. RESTASIS [Concomitant]
     Active Substance: CYCLOSPORINE
     Indication: DRY EYE
     Dosage: 1 GTT, QD
     Route: 047

REACTIONS (1)
  - Conjunctival hyperaemia [Recovered/Resolved]

NARRATIVE: CASE EVENT DATE: 201806
